FAERS Safety Report 4497245-1 (Version None)
Quarter: 2004Q4

REPORT INFORMATION
  Report Type: 
  Country: None (occurrence: None)
  Receive Date: 20041110
  Receipt Date: 20041102
  Transmission Date: 20050328
  Serious: Yes (Death)
  Sender: FDA-Public Use
  Company Number: US-JNJFOC-20040908725

PATIENT
  Age: 43 Year
  Sex: Female

DRUGS (3)
  1. TOPAMAX [Suspect]
     Indication: DRUG USE FOR UNKNOWN INDICATION
     Route: 049
  2. VENLAFAXINE [Suspect]
     Indication: DRUG USE FOR UNKNOWN INDICATION
     Route: 049
  3. SUMATRIPTAN [Suspect]
     Indication: DRUG USE FOR UNKNOWN INDICATION
     Route: 049

REACTIONS (7)
  - BLOOD PH DECREASED [None]
  - BODY TEMPERATURE INCREASED [None]
  - COMPLETED SUICIDE [None]
  - HEART RATE INCREASED [None]
  - INTENTIONAL OVERDOSE [None]
  - PUPIL FIXED [None]
  - RESPIRATORY RATE INCREASED [None]
